FAERS Safety Report 8344704-7 (Version None)
Quarter: 2012Q2

REPORT INFORMATION
  Report Type: 
  Country: None (occurrence: None)
  Receive Date: 20120508
  Receipt Date: 20120427
  Transmission Date: 20120825
  Serious: Yes (Other)
  Sender: FDA-Public Use
  Company Number: US-JNJFOC-20120500824

PATIENT
  Age: 77 Year

DRUGS (2)
  1. CYTOXAN [Suspect]
     Indication: WEGENER'S GRANULOMATOSIS
  2. REMICADE [Suspect]
     Indication: WEGENER'S GRANULOMATOSIS
     Route: 042

REACTIONS (2)
  - PULMONARY MASS [None]
  - MYCOBACTERIUM KANSASII INFECTION [None]
